FAERS Safety Report 8189292-3 (Version None)
Quarter: 2012Q1

REPORT INFORMATION
  Report Type: 
  Country: None (occurrence: None)
  Receive Date: 20120307
  Receipt Date: 20120229
  Transmission Date: 20120608
  Serious: Yes (Death, Hospitalization)
  Sender: FDA-Public Use
  Company Number: US-CELGENEUS-163-21880-12030042

PATIENT
  Age: 83 Year
  Sex: Male

DRUGS (10)
  1. REVLIMID [Suspect]
     Dosage: 5 MILLIGRAM
     Route: 048
     Dates: start: 20110801, end: 20110901
  2. CHOLECALCIFEROL [Concomitant]
     Route: 065
  3. CYANOCOBALAMIN [Concomitant]
     Route: 065
  4. CARVEDILOL [Concomitant]
     Route: 065
  5. SIMVASTATIN [Concomitant]
     Route: 065
  6. FUROSEMIDE [Concomitant]
     Route: 065
  7. REVLIMID [Suspect]
     Indication: AMYLOIDOSIS
     Dosage: 5 MILLIGRAM
     Route: 048
     Dates: start: 20101201
  8. ASPIRIN [Concomitant]
     Route: 065
  9. MIDODRINE HYDROCHLORIDE [Concomitant]
     Route: 065
  10. FOLIC ACID [Concomitant]
     Route: 065

REACTIONS (4)
  - CHEST DISCOMFORT [None]
  - DEATH [None]
  - DYSPNOEA [None]
  - HYPERHIDROSIS [None]
